FAERS Safety Report 7562827-7 (Version None)
Quarter: 2011Q2

REPORT INFORMATION
  Report Type: 
  Country: None (occurrence: None)
  Receive Date: 20110622
  Receipt Date: 20110607
  Transmission Date: 20111010
  Serious: Yes (Hospitalization)
  Sender: FDA-Public Use
  Company Number: US-ROCHE-714082

PATIENT
  Sex: Female

DRUGS (3)
  1. PACLITAXEL [Suspect]
     Dosage: FREQUENCY: OVER 1 HOUR ON DAYS 1,8 AND 15
     Route: 042
     Dates: start: 20100301
  2. CARBOPLATIN [Suspect]
     Dosage: DOSE: AUC 6 IP ON DAY 1
     Route: 033
     Dates: start: 20100301
  3. BEVACIZUMAB [Suspect]
     Dosage: DOSE: 15MG/KG OVER 30-90 MIN ON DAY 1, LAST DOSE: 10 MAY 2010
     Route: 042
     Dates: start: 20100301

REACTIONS (2)
  - SMALL INTESTINAL OBSTRUCTION [None]
  - ABDOMINAL PAIN [None]
